FAERS Safety Report 22031209 (Version 1)
Quarter: 2023Q1

REPORT INFORMATION
  Report Type: Report from Study
  Country: US (occurrence: US)
  Receive Date: 20230223
  Receipt Date: 20230223
  Transmission Date: 20230418
  Serious: No
  Sender: FDA-Public Use
  Company Number: US-ACADIA PHARMACEUTICALS INC.-ACA-2023-PIM-000420

PATIENT
  Age: 74 Year
  Sex: Female

DRUGS (14)
  1. NUPLAZID [Suspect]
     Active Substance: PIMAVANSERIN TARTRATE
     Indication: Hallucination
     Dosage: 34 MILLIGRAM, QD
     Route: 048
     Dates: start: 20230113, end: 20230130
  2. NUPLAZID [Suspect]
     Active Substance: PIMAVANSERIN TARTRATE
     Indication: Parkinson^s disease
  3. ACETAMINOPHEN [Concomitant]
     Active Substance: ACETAMINOPHEN
     Dosage: 325MG, TAKE 2 TABLETS EVERY 4 HOURS AS NEEDED
     Route: 048
  4. ELIQUIS [Concomitant]
     Active Substance: APIXABAN
     Dosage: 5 MILLIGRAM, BID
     Route: 048
  5. CARBIDOPA\LEVODOPA [Concomitant]
     Active Substance: CARBIDOPA\LEVODOPA
     Dosage: 25-100 MG, TAKE 1.5 TABLETS AT 7 AM, 1 TABLET AT 11 AM, 1.5 TABLETS AT 3 PM, 1 TABLET AT 7 PM, AND 1
     Route: 048
  6. CARBIDOPA\LEVODOPA [Concomitant]
     Active Substance: CARBIDOPA\LEVODOPA
     Dosage: CARBIDOPA/LEVODOPA CR 25-100 MG ER, TAKE A TABLET NIGHLY
     Route: 048
  7. XGEVA [Concomitant]
     Active Substance: DENOSUMAB
     Dosage: INJECT 120 MG UNDER THE SKIN EVERY 28 DAYS
     Route: 058
  8. FASLODEX [Concomitant]
     Active Substance: FULVESTRANT
     Dosage: INJECT 500 MG INTO MUSCLE EVERY 28 DAYS
  9. ACETAMINOPHEN\HYDROCODONE [Concomitant]
     Active Substance: ACETAMINOPHEN\HYDROCODONE
     Indication: Pain
     Dosage: 10-325 MG, 1 TABLET EVERY 4 HOURS AS NEEDED
     Route: 048
  10. METOPROLOL SUCCINATE [Concomitant]
     Active Substance: METOPROLOL SUCCINATE
     Dosage: 25 MG, TAKE HALF TABLET EVERY DAY XL
     Route: 048
  11. SENNA-S [DOCUSATE SODIUM;SENNA ALEXANDRINA] [Concomitant]
     Dosage: 8.6-50MG, 1 TABLET TWO TIMES DAILY
     Route: 048
  12. SODIUM CHLORIDE [Concomitant]
     Active Substance: SODIUM CHLORIDE
     Indication: Epistaxis
     Dosage: 1 SPRAY BU EACH NARE ROUTE 4 TIMES DAILY AS NEEDED
  13. SYNTHROID [Concomitant]
     Active Substance: LEVOTHYROXINE SODIUM
     Dosage: 175 MICROGRAM, QD
     Route: 048
  14. QUETIAPINE [Concomitant]
     Active Substance: QUETIAPINE
     Dosage: 25 MILLIGRAM, 1/2 TABLET QHS FOR 5 DAYS THEN INCREASE TO 1 TABLET QHS
     Route: 048

REACTIONS (4)
  - Chest discomfort [Recovered/Resolved]
  - Delirium [Not Recovered/Not Resolved]
  - Dyspnoea [Recovered/Resolved]
  - Drug ineffective [Unknown]

NARRATIVE: CASE EVENT DATE: 20230125
